FAERS Safety Report 4814886-X (Version None)
Quarter: 2005Q4

REPORT INFORMATION
  Report Type: 
  Country: None (occurrence: None)
  Receive Date: 20051028
  Receipt Date: 20051017
  Transmission Date: 20060501
  Serious: Yes (Hospitalization)
  Sender: FDA-Public Use
  Company Number: CA-ROCHE-421381

PATIENT
  Age: 48 Year
  Sex: Female
  Weight: 56.6 kg

DRUGS (13)
  1. DACLIZUMAB [Suspect]
     Route: 042
     Dates: start: 20040630, end: 20040630
  2. DACLIZUMAB [Suspect]
     Route: 042
     Dates: end: 20040825
  3. MYCOPHENOLATE MOFETIL [Suspect]
     Route: 048
     Dates: start: 20040630
  4. MYCOPHENOLATE MOFETIL [Suspect]
     Dosage: FREQUENCY REPORTED AS DIE.
     Route: 048
  5. SIROLIMUS [Suspect]
     Dosage: FREQUENCY REPORTED AS DIE.
     Route: 048
     Dates: start: 20040630
  6. CORTICOSTEROIDS [Suspect]
     Route: 065
  7. ACTONEL [Concomitant]
     Dates: start: 20040824
  8. MONOCOR [Concomitant]
     Route: 048
     Dates: start: 20040826
  9. CALCIUM GLUCONATE [Concomitant]
     Dates: start: 20040824
  10. VITAMINE D [Concomitant]
     Route: 048
     Dates: start: 20040824
  11. LIPITOR [Concomitant]
     Dates: start: 20040909
  12. LASIX [Concomitant]
     Dates: start: 20040428
  13. ZANTAC [Concomitant]
     Dates: start: 20040703

REACTIONS (1)
  - PYELONEPHRITIS ACUTE [None]
